FAERS Safety Report 18602179 (Version 1)
Quarter: 2020Q4

REPORT INFORMATION
  Report Type: Spontaneous
  Country: US (occurrence: US)
  Receive Date: 20201210
  Receipt Date: 20201210
  Transmission Date: 20210114
  Serious: No
  Sender: FDA-Public Use
  Company Number: US-PFIZER INC-2020485058

PATIENT
  Age: 69 Year
  Sex: Female

DRUGS (12)
  1. XANAX [Suspect]
     Active Substance: ALPRAZOLAM
     Indication: DEPRESSION
     Dosage: 1 MG (3 TO 4 TIMES PER DAY)
     Route: 048
  2. AMLODIPINE BESILATE [Suspect]
     Active Substance: AMLODIPINE BESYLATE
     Dosage: 10 MG, 1X/DAY (10MG TABLET ONCE A DAY BY MOUTH)
     Route: 048
  3. GLYBURIDE. [Suspect]
     Active Substance: GLYBURIDE
     Indication: DIABETES MELLITUS
     Dosage: 5 MG, 2X/DAY; (5MG TABLET, ONE TABLET BY MOUTH TWICE A DAY)
     Route: 048
  4. LEVOXYL [Suspect]
     Active Substance: LEVOTHYROXINE SODIUM
     Dosage: 112 UG, 1X/DAY (112MCG TABLET, ONE TABLET BY MOUTH IN THE MORNING)
     Route: 048
  5. OMEPRAZOLE. [Suspect]
     Active Substance: OMEPRAZOLE
     Dosage: 20 MG, 1X/DAY; (20MG CAPSULE, ONE CAPSULE BY MOUTH ONCE A DAY)
     Route: 048
  6. ATORVASTATIN CALCIUM. [Suspect]
     Active Substance: ATORVASTATIN CALCIUM
     Dosage: 40 MG, 1X/DAY (40MG, ONE TABLET BY MOUTH AT BEDTIME)
     Route: 048
  7. ZOLOFT [Suspect]
     Active Substance: SERTRALINE HYDROCHLORIDE
     Dosage: 100 MG, 1X/DAY (100MG TABLET ONCE A DAY BY MOUTH)
     Route: 048
  8. BUPROPION. [Suspect]
     Active Substance: BUPROPION
     Indication: DEPRESSION
     Dosage: 1 DF, 2X/DAY
     Route: 048
  9. PREGABALIN. [Suspect]
     Active Substance: PREGABALIN
     Dosage: 50 MG, 2X/DAY (50MG CAPSULE, ONE CAPSULE BY MOUTH TWICE A DAILY)
     Route: 048
  10. INSULIN [Concomitant]
     Active Substance: INSULIN NOS
     Indication: DIABETES MELLITUS
     Dosage: UNK, 2X/DAY (INJECTION TWICE A DAY)
  11. INSULIN [Concomitant]
     Active Substance: INSULIN NOS
     Dosage: 40 IU, 1X/DAY
  12. INSULIN [Concomitant]
     Active Substance: INSULIN NOS
     Dosage: 60 IU, 1X/DAY

REACTIONS (2)
  - Weight fluctuation [Unknown]
  - Intentional product misuse [Unknown]
